FAERS Safety Report 9911291 (Version 1)
Quarter: 2014Q1

REPORT INFORMATION
  Report Type: Spontaneous
  Country: GB (occurrence: GB)
  Receive Date: 20140219
  Receipt Date: 20140219
  Transmission Date: 20141002
  Serious: Yes (Disabling)
  Sender: FDA-Public Use
  Company Number: GB-BRISTOL-MYERS SQUIBB COMPANY-20153649

PATIENT
  Age: 66 Year
  Sex: Female

DRUGS (3)
  1. ELIQUIS [Suspect]
     Indication: ATRIAL FIBRILLATION
     Route: 048
     Dates: start: 201310, end: 20140124
  2. PANTOPRAZOLE [Concomitant]
  3. PARACETAMOL [Concomitant]

REACTIONS (3)
  - Labyrinthitis [Unknown]
  - Gingivitis [Recovered/Resolved]
  - Angina bullosa haemorrhagica [Recovered/Resolved]
